FAERS Safety Report 11718007 (Version 1)
Quarter: 2015Q4

REPORT INFORMATION
  Report Type: Report from Study
  Country: GB (occurrence: GB)
  Receive Date: 20151110
  Receipt Date: 20151110
  Transmission Date: 20160304
  Serious: Yes (Death, Other)
  Sender: FDA-Public Use
  Company Number: GB-UCBSA-2015035503

PATIENT

DRUGS (1)
  1. GLYCERYL TRINITRATE [Suspect]
     Active Substance: NITROGLYCERIN
     Indication: CEREBROVASCULAR ACCIDENT
     Dosage: UNKNOWN DOSE
     Route: 062

REACTIONS (5)
  - Adverse event [Unknown]
  - Headache [Unknown]
  - Death [Fatal]
  - Hypotension [Unknown]
  - Hypertension [Unknown]
